FAERS Safety Report 7752687-3 (Version None)
Quarter: 2011Q3

REPORT INFORMATION
  Report Type: 
  Country: None (occurrence: None)
  Receive Date: 20110915
  Receipt Date: 20110908
  Transmission Date: 20111222
  Serious: Yes (Other)
  Sender: FDA-Public Use
  Company Number: JP-PFIZER INC-2011211375

PATIENT
  Age: 98 Year
  Sex: Female

DRUGS (1)
  1. VFEND [Suspect]

REACTIONS (3)
  - HEPATIC FUNCTION ABNORMAL [None]
  - DEPRESSED LEVEL OF CONSCIOUSNESS [None]
  - AMMONIA INCREASED [None]
